FAERS Safety Report 9188656 (Version 1)
Quarter: 2013Q1

REPORT INFORMATION
  Report Type: Spontaneous
  Country: US (occurrence: US)
  Receive Date: 20130325
  Receipt Date: 20130325
  Transmission Date: 20140127
  Serious: Yes (Other)
  Sender: FDA-Public Use
  Company Number: US-GLAXOSMITHKLINE-A1016829A

PATIENT
  Age: 56 Year
  Sex: Female

DRUGS (2)
  1. ALLI [Suspect]
     Indication: WEIGHT LOSS DIET
     Route: 048
     Dates: end: 20130321
  2. UNSPECIFIED MEDICATIONS [Suspect]

REACTIONS (6)
  - Rectal haemorrhage [Not Recovered/Not Resolved]
  - Abdominal pain upper [Recovered/Resolved]
  - Flatulence [Recovered/Resolved]
  - Frequent bowel movements [Recovered/Resolved]
  - Treatment noncompliance [Unknown]
  - Drug interaction [Unknown]
